FAERS Safety Report 19731351 (Version 1)
Quarter: 2021Q3

REPORT INFORMATION
  Report Type: Spontaneous
  Country: US (occurrence: US)
  Receive Date: 20210819
  Receipt Date: 20210819
  Transmission Date: 20211014
  Serious: Yes (Other)
  Sender: FDA-Public Use
  Company Number: None

PATIENT
  Age: 76 Year
  Sex: Female

DRUGS (8)
  1. CETIRIZINE [Concomitant]
     Active Substance: CETIRIZINE HYDROCHLORIDE
  2. POMALYST [Suspect]
     Active Substance: POMALIDOMIDE
     Indication: PLASMA CELL MYELOMA
     Route: 048
     Dates: start: 20180604
  3. IMIQUIMOD CREAM [Concomitant]
     Active Substance: IMIQUIMOD
  4. DARATUMUMAB [Concomitant]
     Active Substance: DARATUMUMAB
  5. ACYCLOVIR. [Concomitant]
     Active Substance: ACYCLOVIR
  6. MONTELUKAST [Concomitant]
     Active Substance: MONTELUKAST SODIUM
  7. POMALIDOMIDE [Concomitant]
     Active Substance: POMALIDOMIDE
  8. DEXAMETHASONE. [Concomitant]
     Active Substance: DEXAMETHASONE

REACTIONS (3)
  - Neuropathy peripheral [None]
  - Neutropenia [None]
  - Laboratory test abnormal [None]

NARRATIVE: CASE EVENT DATE: 20210808
